FAERS Safety Report 6714152-1 (Version None)
Quarter: 2010Q2

REPORT INFORMATION
  Report Type: 
  Country: None (occurrence: None)
  Receive Date: 20100506
  Receipt Date: 20100503
  Transmission Date: 20101027
  Serious: Yes (Hospitalization)
  Sender: FDA-Public Use
  Company Number: US-B.I. PHARMACEUTICALS,INC./RIDGEFIELD-2010-BP-05030BP

PATIENT
  Age: 77 Year
  Sex: Male

DRUGS (8)
  1. AGGRENOX [Suspect]
     Indication: CEREBROVASCULAR ACCIDENT
     Route: 048
     Dates: start: 20100101, end: 20100401
  2. ISOSORBIDE [Concomitant]
     Indication: CORONARY ARTERY BYPASS
  3. ASA (BABY) [Concomitant]
     Indication: CORONARY ARTERY BYPASS
  4. SUPPLEMENTS [Concomitant]
     Indication: PROPHYLAXIS
  5. CELEBREX [Concomitant]
     Indication: OSTEOARTHRITIS
  6. ZOCOR [Concomitant]
     Indication: BLOOD CHOLESTEROL INCREASED
  7. NIACIN [Concomitant]
     Indication: BLOOD CHOLESTEROL INCREASED
     Dosage: 500 MG
  8. ATENOLOL [Concomitant]
     Indication: PROPHYLAXIS
     Dosage: 50 MG

REACTIONS (2)
  - ANAEMIA [None]
  - ANGINA PECTORIS [None]
